FAERS Safety Report 19003207 (Version 1)
Quarter: 2021Q1

REPORT INFORMATION
  Report Type: Spontaneous
  Country: GR (occurrence: GR)
  Receive Date: 20210312
  Receipt Date: 20210312
  Transmission Date: 20210420
  Serious: Yes (Other)
  Sender: FDA-Public Use
  Company Number: GR-MYLANLABS-2021M1013277

PATIENT
  Age: 86 Year
  Sex: Female

DRUGS (2)
  1. SERKEP [Suspect]
     Active Substance: FLUTICASONE PROPIONATE\SALMETEROL XINAFOATE
     Indication: DYSPNOEA
     Dosage: TWICE PER DAY, ONE INHALATION IN THE MORNING AND ONE IN THE EVENING
  2. ATROVENT [Concomitant]
     Active Substance: IPRATROPIUM BROMIDE
     Indication: DYSPNOEA
     Dosage: 2 INHALATION IN MORNING, 2 INHALATION IN EVENING

REACTIONS (1)
  - Urinary tract obstruction [Unknown]
